FAERS Safety Report 5700988-2 (Version None)
Quarter: 2008Q2

REPORT INFORMATION
  Report Type: 
  Country: None (occurrence: None)
  Receive Date: 20080410
  Receipt Date: 20080404
  Transmission Date: 20081010
  Serious: Yes (Hospitalization, Other)
  Sender: FDA-Public Use
  Company Number: FR-ABBOTT-08P-056-0445820-00

PATIENT
  Sex: Female

DRUGS (5)
  1. KALETRA [Suspect]
     Indication: HIV TEST POSITIVE
     Route: 048
     Dates: start: 20060401, end: 20070601
  2. DIDANOSINE [Suspect]
     Indication: HIV TEST POSITIVE
     Route: 048
     Dates: start: 20030101, end: 20070601
  3. LAMIVUDINE [Suspect]
     Indication: HIV TEST POSITIVE
     Route: 048
     Dates: start: 20030101, end: 20070601
  4. NEVIRAPINE [Suspect]
     Indication: HIV TEST POSITIVE
     Route: 048
     Dates: start: 20030101, end: 20060401
  5. PENTAMIDINE ISETHIONATE [Concomitant]
     Indication: PROPHYLAXIS

REACTIONS (7)
  - ASCITES [None]
  - DRUG INEFFECTIVE [None]
  - FIBROSIS [None]
  - HYPERALDOSTERONISM [None]
  - PLEURAL EFFUSION [None]
  - PORTAL HYPERTENSION [None]
  - VARICES OESOPHAGEAL [None]
